FAERS Safety Report 6068122-X (Version None)
Quarter: 2009Q1

REPORT INFORMATION
  Report Type: 
  Country: None (occurrence: None)
  Receive Date: 20090206
  Receipt Date: 20090130
  Transmission Date: 20090719
  Serious: Yes (Other)
  Sender: FDA-Public Use
  Company Number: FR-AMGEN-US320644

PATIENT
  Sex: Male

DRUGS (3)
  1. ENBREL [Suspect]
     Indication: SPONDYLOARTHROPATHY
     Route: 058
     Dates: start: 20080822, end: 20080907
  2. SPECIAFOLDINE [Concomitant]
     Dosage: UNKNOWN
     Route: 065
  3. METHOTREXATE [Concomitant]
     Indication: SPONDYLOARTHROPATHY
     Dosage: 20 MG TOTAL WEEKLY
     Route: 048

REACTIONS (3)
  - ACUTE RESPIRATORY FAILURE [None]
  - ASTHMA [None]
  - HYPERSENSITIVITY [None]
